FAERS Safety Report 13000942 (Version 3)
Quarter: 2017Q2

REPORT INFORMATION
  Report Type: Spontaneous
  Country: US (occurrence: US)
  Receive Date: 20161206
  Receipt Date: 20170414
  Transmission Date: 20170830
  Serious: Yes (Hospitalization)
  Sender: FDA-Public Use
  Company Number: US-B.I. PHARMACEUTICALS,INC./RIDGEFIELD-2016-BI-082941

PATIENT
  Age: 67 Year
  Sex: Male
  Weight: 109.77 kg

DRUGS (25)
  1. DICYCLOMINE [Concomitant]
     Active Substance: DICYCLOMINE HYDROCHLORIDE
     Indication: PRODUCT USED FOR UNKNOWN INDICATION
     Route: 065
  2. METOLAZONE (ZAROXOLYN) [Concomitant]
     Indication: PRODUCT USED FOR UNKNOWN INDICATION
     Route: 048
     Dates: start: 20141204, end: 20151002
  3. LOPERAMIDE (IMODIUM) [Concomitant]
     Indication: DIARRHOEA
     Route: 048
     Dates: start: 20150728
  4. AMIODARONE (PACERONE) [Concomitant]
     Indication: PRODUCT USED FOR UNKNOWN INDICATION
     Route: 048
     Dates: start: 20150105, end: 20150701
  5. POTASSIUM CHLORIDE SA (K-DUR) [Concomitant]
     Indication: PRODUCT USED FOR UNKNOWN INDICATION
     Route: 048
     Dates: start: 20141204, end: 20150515
  6. ROSUVASTATIN (CRESTOR) [Concomitant]
     Indication: PRODUCT USED FOR UNKNOWN INDICATION
     Route: 048
     Dates: start: 20150105, end: 20151111
  7. ROSUVASTATIN (CRESTOR) [Concomitant]
     Dates: start: 2013
  8. PRADAXA [Suspect]
     Active Substance: DABIGATRAN ETEXILATE MESYLATE
     Indication: ATRIAL FIBRILLATION
     Route: 048
     Dates: start: 20120531, end: 20151204
  9. ALLOPURINOL (ZYLOPRIM) [Concomitant]
     Route: 065
     Dates: start: 2013, end: 2016
  10. METOPROLOL (TOPROL XL) [Concomitant]
     Indication: PRODUCT USED FOR UNKNOWN INDICATION
     Route: 048
     Dates: start: 20150105, end: 20151209
  11. POTASSIUM CHLORIDE SA (KLOR-CON) [Concomitant]
     Indication: PRODUCT USED FOR UNKNOWN INDICATION
     Route: 048
     Dates: start: 20141204, end: 20150515
  12. LANTUS [Concomitant]
     Active Substance: INSULIN GLARGINE
     Indication: PRODUCT USED FOR UNKNOWN INDICATION
     Route: 065
     Dates: start: 2013
  13. DIGOXIN. [Concomitant]
     Active Substance: DIGOXIN
     Indication: PRODUCT USED FOR UNKNOWN INDICATION
     Route: 065
  14. LANTUS [Concomitant]
     Active Substance: INSULIN GLARGINE
     Dates: start: 2013
  15. METOPROLOL (TOPROL XL) [Concomitant]
     Route: 065
     Dates: start: 2013
  16. GABAPENTIN. [Concomitant]
     Active Substance: GABAPENTIN
     Indication: PRODUCT USED FOR UNKNOWN INDICATION
     Route: 065
  17. ALLOPURINOL (ZYLOPRIM) [Concomitant]
     Indication: PRODUCT USED FOR UNKNOWN INDICATION
     Route: 048
     Dates: start: 20150105, end: 20151209
  18. AMIODARONE (PACERONE) [Concomitant]
     Route: 065
     Dates: start: 2008
  19. SPINORONOLACTONE (ALDACTONE) [Concomitant]
     Indication: PRODUCT USED FOR UNKNOWN INDICATION
     Route: 048
     Dates: start: 20150201, end: 20150515
  20. LANTUS [Concomitant]
     Active Substance: INSULIN GLARGINE
     Indication: PRODUCT USED FOR UNKNOWN INDICATION
     Dosage: FORM STRENGTH: 100 UNIT/ML?UNIT DOSE/DAILY DOSE: 20 UNITS INTO THE SKIN
     Route: 058
     Dates: start: 20150112, end: 20151209
  21. CHLORZOXANE (PARAFON FORTE DSC) [Concomitant]
     Indication: MUSCLE SPASMS
     Route: 048
     Dates: start: 20141207, end: 20150720
  22. DOXAZOSIN (CARDURA) [Concomitant]
     Indication: PRODUCT USED FOR UNKNOWN INDICATION
     Route: 048
     Dates: start: 20150105, end: 20150612
  23. RANITIDINE (ZANTAC) [Concomitant]
     Indication: PRODUCT USED FOR UNKNOWN INDICATION
     Route: 048
     Dates: start: 20150105, end: 20151209
  24. TELMISARTAN (MICARDIS) [Concomitant]
     Indication: PRODUCT USED FOR UNKNOWN INDICATION
     Route: 048
     Dates: start: 20150112, end: 20150515
  25. ISOSORBIDE MONONITRATE. [Concomitant]
     Active Substance: ISOSORBIDE MONONITRATE
     Indication: PRODUCT USED FOR UNKNOWN INDICATION
     Route: 065
     Dates: start: 2013, end: 2016

REACTIONS (1)
  - Gastrointestinal haemorrhage [Unknown]

NARRATIVE: CASE EVENT DATE: 20151204
